FAERS Safety Report 25758303 (Version 1)
Quarter: 2025Q3

REPORT INFORMATION
  Report Type: Spontaneous
  Country: US (occurrence: US)
  Receive Date: 20250904
  Receipt Date: 20250904
  Transmission Date: 20251021
  Serious: Yes (Other)
  Sender: WAYLIS THERAPEUTICS LLC
  Company Number: US-WT-2025-100541-LIT-29

PATIENT
  Age: 57 Year
  Sex: Female

DRUGS (3)
  1. BUSULFAN [Suspect]
     Active Substance: BUSULFAN
     Indication: Bone marrow conditioning regimen
     Route: 065
  2. FLUDARABINE [Suspect]
     Active Substance: FLUDARABINE PHOSPHATE
     Indication: Bone marrow conditioning regimen
     Route: 065
  3. URSODIOL [Concomitant]
     Active Substance: URSODIOL
     Route: 065

REACTIONS (1)
  - Venoocclusive liver disease [Recovered/Resolved]
